FAERS Safety Report 10176035 (Version 2)
Quarter: 2014Q2

REPORT INFORMATION
  Report Type: Report from Study
  Country: NL (occurrence: NL)
  Receive Date: 20140516
  Receipt Date: 20140602
  Transmission Date: 20141212
  Serious: Yes (Death)
  Sender: FDA-Public Use
  Company Number: PHHY2014NL058689

PATIENT
  Sex: Female

DRUGS (9)
  1. SANDOSTATIN LAR [Suspect]
     Indication: NEUROENDOCRINE TUMOUR
     Dosage: 20 MG/2 ML, ONCE EVERY 4 WEEKS
     Route: 030
     Dates: start: 20131011
  2. AMLODIPINE [Concomitant]
     Dosage: UNK UKN, UNK
  3. LEVETIRACETAM [Concomitant]
     Dosage: UNK UKN, UNK
  4. PREGABALIN [Concomitant]
     Dosage: UNK UKN, UNK
  5. METFORMIN [Concomitant]
     Dosage: UNK UKN, UNK
  6. ONGLYZA [Concomitant]
     Dosage: UNK UKN, UNK
  7. FRAXIPARINE [Concomitant]
     Dosage: UNK UKN, UNK
  8. GASTILOX [Concomitant]
     Dosage: UNK UKN, UNK
  9. RANITIDINE [Concomitant]
     Dosage: UNK UKN, UNK

REACTIONS (1)
  - Metastasis [Fatal]
